FAERS Safety Report 14166064 (Version 1)
Quarter: 2017Q4

REPORT INFORMATION
  Report Type: Spontaneous
  Country: US (occurrence: US)
  Receive Date: 20171107
  Receipt Date: 20171107
  Transmission Date: 20180321
  Serious: Yes (Other)
  Sender: FDA-Public Use
  Company Number: US-PFIZER INC-2017477320

PATIENT

DRUGS (2)
  1. PRILOSEC [Suspect]
     Active Substance: OMEPRAZOLE MAGNESIUM
     Dosage: UNK, NUMEROUS OCCASIONS
     Route: 048
     Dates: start: 2012, end: 2014
  2. PROTONIX [Suspect]
     Active Substance: PANTOPRAZOLE SODIUM
     Dosage: UNK, NUMEROUS OCCASIONS
     Route: 048
     Dates: start: 2012, end: 2014

REACTIONS (2)
  - Renal failure [Unknown]
  - Chronic kidney disease [Unknown]
